FAERS Safety Report 6152900-2 (Version None)
Quarter: 2009Q2

REPORT INFORMATION
  Report Type: 
  Country: None (occurrence: None)
  Receive Date: 20090409
  Receipt Date: 20090326
  Transmission Date: 20091009
  Serious: Yes (Other)
  Sender: FDA-Public Use
  Company Number: 2009-193991-NL

PATIENT
  Age: 21 Year
  Sex: Female

DRUGS (1)
  1. IMPLANON [Suspect]
     Dates: start: 20080116, end: 20080818

REACTIONS (3)
  - MIGRAINE [None]
  - MOOD ALTERED [None]
  - OVARIAN CYST RUPTURED [None]
